FAERS Safety Report 10792796 (Version 1)
Quarter: 2015Q1

REPORT INFORMATION
  Report Type: Report from Study
  Country: US (occurrence: US)
  Receive Date: 20150213
  Receipt Date: 20150213
  Transmission Date: 20150721
  Serious: Yes (Hospitalization, Other)
  Sender: FDA-Public Use
  Company Number: US-ABBVIE-13P-163-1179177-00

PATIENT
  Sex: Female

DRUGS (13)
  1. VITAMIN D [Concomitant]
     Active Substance: CHOLECALCIFEROL
     Indication: PRODUCT USED FOR UNKNOWN INDICATION
  2. OSTEO BI-FLEX [Concomitant]
     Active Substance: CHONDROITIN SULFATE A\GLUCOSAMINE
     Indication: PRODUCT USED FOR UNKNOWN INDICATION
  3. KLOR-CON [Concomitant]
     Active Substance: POTASSIUM CHLORIDE
     Indication: ELECTROLYTE SUBSTITUTION THERAPY
  4. TUMS [Concomitant]
     Active Substance: CALCIUM CARBONATE
     Indication: PRODUCT USED FOR UNKNOWN INDICATION
     Dosage: DAILY
  5. HUMIRA [Suspect]
     Active Substance: ADALIMUMAB
     Indication: RHEUMATOID ARTHRITIS
     Dates: start: 2005, end: 2008
  6. ATENOLOL/CHLORTHALIDONE [Concomitant]
     Active Substance: ATENOLOL\CHLORTHALIDONE
     Indication: HYPERTENSION
     Dosage: 50/25MG
  7. THYROXINE [Concomitant]
     Active Substance: LEVOTHYROXINE
     Indication: HYPOTHYROIDISM
  8. HYDROCODONE [Concomitant]
     Active Substance: HYDROCODONE
     Indication: PAIN
     Dosage: 5/500, DAILY
  9. ASPIRIN. [Concomitant]
     Active Substance: ASPIRIN
     Indication: PRODUCT USED FOR UNKNOWN INDICATION
  10. HUMIRA [Suspect]
     Active Substance: ADALIMUMAB
     Dates: start: 2009
  11. DEXILANT [Concomitant]
     Active Substance: DEXLANSOPRAZOLE
     Indication: DYSPEPSIA
  12. OCUVITE ADULT 50+ [Concomitant]
     Indication: PRODUCT USED FOR UNKNOWN INDICATION
  13. FOLIC ACID. [Concomitant]
     Active Substance: FOLIC ACID
     Indication: PRODUCT USED FOR UNKNOWN INDICATION

REACTIONS (15)
  - Gait disturbance [Recovering/Resolving]
  - Eye haemorrhage [Unknown]
  - Arthralgia [Recovering/Resolving]
  - Gastrointestinal bacterial infection [Unknown]
  - Eczema [Unknown]
  - Gastrointestinal ulcer haemorrhage [Not Recovered/Not Resolved]
  - Retinal oedema [Unknown]
  - Dyspepsia [Unknown]
  - Psoriasis [Unknown]
  - Nail bed disorder [Unknown]
  - Nail discolouration [Unknown]
  - Rash [Unknown]
  - Cataract [Unknown]
  - Rheumatoid arthritis [Recovering/Resolving]
  - Pruritus [Unknown]

NARRATIVE: CASE EVENT DATE: 2008
